FAERS Safety Report 10232444 (Version 2)
Quarter: 2014Q2

REPORT INFORMATION
  Report Type: Spontaneous
  Country: GB (occurrence: GB)
  Receive Date: 20140612
  Receipt Date: 20140623
  Transmission Date: 20141212
  Serious: Yes (Death)
  Sender: FDA-Public Use
  Company Number: PHFR2014GB004140

PATIENT
  Sex: Male

DRUGS (6)
  1. CLOZARIL [Suspect]
     Dosage: 200 MG, DAILY
     Route: 048
     Dates: start: 20021002
  2. EPILIM CHRONO [Concomitant]
     Indication: EPILEPSY
     Dosage: 2 G, DAILY
     Route: 048
  3. HALOPERIDOL [Concomitant]
     Indication: SCHIZOPHRENIA
     Dosage: 3 MG, DAILY
     Route: 048
  4. LEVOTHYROXINE [Concomitant]
     Indication: HYPOTHYROIDISM
     Dosage: 75 UG, DAILY
     Route: 048
  5. HYOSCINE [Concomitant]
     Indication: SALIVARY HYPERSECRETION
     Dosage: 300 UG, DAILY
     Route: 048
  6. GABAPENTIN [Concomitant]
     Indication: EPILEPSY
     Dosage: 1600 MG, DAILY
     Route: 048

REACTIONS (1)
  - Pneumonia [Fatal]
